FAERS Safety Report 22020477 (Version 3)
Quarter: 2023Q1

REPORT INFORMATION
  Report Type: Report from Study
  Country: US (occurrence: US)
  Receive Date: 20230222
  Receipt Date: 20230315
  Transmission Date: 20230418
  Serious: Yes (Hospitalization, Other)
  Sender: FDA-Public Use
  Company Number: US-OTSUKA-2023_004362

PATIENT
  Sex: Female
  Weight: 76.66 kg

DRUGS (2)
  1. CEDAZURIDINE\DECITABINE [Suspect]
     Active Substance: CEDAZURIDINE\DECITABINE
     Indication: Acute myeloid leukaemia
     Dosage: 1 DF (35-100MG), QD ON DAYS 1-5 OF 28 DAYS CYCLE
     Route: 048
     Dates: start: 20230123
  2. CEDAZURIDINE\DECITABINE [Suspect]
     Active Substance: CEDAZURIDINE\DECITABINE
     Indication: Dysplasia

REACTIONS (4)
  - Bronchitis [Unknown]
  - Infection [Unknown]
  - Platelet disorder [Unknown]
  - Product use in unapproved indication [Unknown]
